FAERS Safety Report 8965505 (Version 1)
Quarter: 2012Q4

REPORT INFORMATION
  Report Type: Spontaneous
  Country: US (occurrence: None)
  Receive Date: 20121205
  Receipt Date: 20121205
  Transmission Date: 20130627
  Serious: Yes (Hospitalization)
  Sender: FDA-Public Use
  Company Number: FK201203583

PATIENT
  Age: 48 Year
  Sex: Female

DRUGS (1)
  1. GEMCITABINE [Suspect]
     Indication: ADENOCARCINOMA PANCREAS

REACTIONS (2)
  - Acute hepatic failure [None]
  - Hepatic encephalopathy [None]
